FAERS Safety Report 6035081-5 (Version None)
Quarter: 2009Q1

REPORT INFORMATION
  Report Type: 
  Country: None (occurrence: None)
  Receive Date: 20090112
  Receipt Date: 20090107
  Transmission Date: 20090719
  Serious: Yes (Hospitalization, Other)
  Sender: FDA-Public Use
  Company Number: TR-ROXANE LABORATORIES, INC.-2009-RO-00026RO

PATIENT
  Age: 64 Year
  Sex: Male

DRUGS (9)
  1. METHOTREXATE [Suspect]
  2. MOXIFLOXACIN HCL [Suspect]
     Indication: UPPER RESPIRATORY TRACT INFECTION
  3. SODIUM CHLORIDE [Concomitant]
     Route: 042
  4. LEUCOVORIN CALCIUM [Concomitant]
     Route: 042
  5. RED BLOOD CELL SUSPENSION [Concomitant]
  6. FRESH FROZEN PLASMA [Concomitant]
  7. ACETAMINOPHEN [Concomitant]
     Indication: PYREXIA
     Route: 048
  8. CEFEPIME [Concomitant]
     Route: 042
  9. CIPROFLOXACIN [Concomitant]
     Route: 042

REACTIONS (13)
  - COAGULATION TEST ABNORMAL [None]
  - DRUG PRESCRIBING ERROR [None]
  - HYPOTENSION [None]
  - JAUNDICE [None]
  - NAUSEA [None]
  - PAIN [None]
  - PANCYTOPENIA [None]
  - PYREXIA [None]
  - RENAL IMPAIRMENT [None]
  - SKIN ULCER [None]
  - TACHYCARDIA [None]
  - UPPER RESPIRATORY TRACT INFECTION [None]
  - VOMITING [None]
